FAERS Safety Report 21340361 (Version 1)
Quarter: 2022Q3

REPORT INFORMATION
  Report Type: Spontaneous
  Country: US (occurrence: US)
  Receive Date: 20220916
  Receipt Date: 20220916
  Transmission Date: 20221027
  Serious: Yes (Other)
  Sender: FDA-Public Use
  Company Number: US-AMGEN-USASP2022157099

PATIENT

DRUGS (4)
  1. TRASTUZUMAB [Suspect]
     Active Substance: TRASTUZUMAB
     Indication: Colorectal cancer metastatic
     Dosage: 4 MILLIGRAM/KG (LOADING DOSE)
  2. TRASTUZUMAB [Suspect]
     Active Substance: TRASTUZUMAB
     Indication: Off label use
     Dosage: 2 MILLIGRAM, QWK
  3. NERATINIB [Suspect]
     Active Substance: NERATINIB
     Indication: Colorectal cancer metastatic
     Dosage: 240 MILLIGRAM, QD (ARM 1)
     Route: 048
  4. NERATINIB [Suspect]
     Active Substance: NERATINIB
     Dosage: 240 MILLIGRAM, QD (ARM 2)
     Route: 048

REACTIONS (7)
  - Abdominal distension [Unknown]
  - Diarrhoea [Unknown]
  - Rash [Unknown]
  - Abdominal pain [Unknown]
  - Therapy partial responder [Unknown]
  - Toxicity to various agents [Unknown]
  - Off label use [Unknown]
